FAERS Safety Report 18643816 (Version 1)
Quarter: 2020Q4

REPORT INFORMATION
  Report Type: Spontaneous
  Country: US (occurrence: US)
  Receive Date: 20201221
  Receipt Date: 20201221
  Transmission Date: 20210114
  Serious: Yes (Other)
  Sender: FDA-Public Use
  Company Number: US-COOPERSURGICAL, INC.-US-2020CPS003176

PATIENT
  Age: 26 Year
  Sex: Female
  Weight: 90.7 kg

DRUGS (2)
  1. PARAGARD T 380A [Suspect]
     Active Substance: COPPER
     Indication: CONTRACEPTION
     Dosage: UNK
     Route: 015
     Dates: start: 20201028, end: 20201204
  2. PARAGARD T 380A [Suspect]
     Active Substance: COPPER
     Dosage: UNK
     Route: 015
     Dates: start: 20201204

REACTIONS (7)
  - Metrorrhagia [Unknown]
  - Haemoglobin decreased [Not Recovered/Not Resolved]
  - Dysmenorrhoea [Unknown]
  - Menorrhagia [Unknown]
  - Device dislocation [Recovered/Resolved]
  - Uterine leiomyoma [Not Recovered/Not Resolved]
  - Complication associated with device [Recovered/Resolved]

NARRATIVE: CASE EVENT DATE: 2020
